FAERS Safety Report 5060661-3 (Version None)
Quarter: 2006Q3

REPORT INFORMATION
  Report Type: 
  Country: None (occurrence: None)
  Receive Date: 20060719
  Receipt Date: 20060719
  Transmission Date: 20061208
  Serious: Yes (Life-Threatening, Other)
  Sender: FDA-Public Use
  Company Number: None

PATIENT
  Age: 54 Year
  Sex: Female
  Weight: 67.1324 kg

DRUGS (1)
  1. LISINOPRIL [Suspect]
     Indication: HYPERTENSION
     Dosage: 20 MG ONCE A DAY PO
     Route: 048
     Dates: start: 20041009, end: 20060526

REACTIONS (4)
  - ANGIONEUROTIC OEDEMA [None]
  - DYSPHONIA [None]
  - PHARYNGEAL OEDEMA [None]
  - THROAT TIGHTNESS [None]
